FAERS Safety Report 20750052 (Version 1)
Quarter: 2022Q2

REPORT INFORMATION
  Report Type: Spontaneous
  Country: IE (occurrence: IE)
  Receive Date: 20220426
  Receipt Date: 20220426
  Transmission Date: 20220721
  Serious: Yes (Other)
  Sender: FDA-Public Use
  Company Number: IE-KRKA-IE2022K03873LIT

PATIENT
  Age: 70 Year
  Sex: Male

DRUGS (2)
  1. TADALAFIL [Suspect]
     Active Substance: TADALAFIL
     Indication: Pulmonary arterial hypertension
     Dosage: 40 MILLIGRAM, QD(40 MG, 1X PER DAY)
  2. MACITENTAN [Suspect]
     Active Substance: MACITENTAN
     Indication: Pulmonary arterial hypertension
     Dosage: 10 MILLIGRAM, QD(10 MG, 1X PER DAY)

REACTIONS (3)
  - Right ventricular failure [Recovered/Resolved]
  - Condition aggravated [Unknown]
  - Epistaxis [Unknown]
